FAERS Safety Report 10040726 (Version 1)
Quarter: 2014Q1

REPORT INFORMATION
  Report Type: Spontaneous
  Country: US (occurrence: None)
  Receive Date: 20140326
  Receipt Date: 20140326
  Transmission Date: 20141002
  Serious: Yes (Disabling)
  Sender: FDA-Public Use
  Company Number: None

PATIENT
  Age: 71 Year
  Sex: Male

DRUGS (1)
  1. GABAPENTIN [Suspect]
     Dosage: 1 TABLET TWICE DAILY TAKEN BY MOUTH, 2 DOSES
     Route: 048

REACTIONS (3)
  - Pruritus [None]
  - Chest pain [None]
  - Dyspnoea [None]
